FAERS Safety Report 16918503 (Version 1)
Quarter: 2019Q4

REPORT INFORMATION
  Report Type: Spontaneous
  Country: FR (occurrence: FR)
  Receive Date: 20191015
  Receipt Date: 20191015
  Transmission Date: 20200122
  Serious: Yes (Other)
  Sender: FDA-Public Use
  Company Number: FR-PFIZER INC-2019437712

PATIENT
  Age: 36 Year
  Sex: Female
  Weight: 67.3 kg

DRUGS (1)
  1. DOSTINEX [Suspect]
     Active Substance: CABERGOLINE
     Indication: PROLACTIN-PRODUCING PITUITARY TUMOUR
     Dosage: 0.5 MG, 1X/DAY
     Route: 048
     Dates: start: 2017, end: 20190731

REACTIONS (1)
  - Intracranial haematoma [Recovered/Resolved]

NARRATIVE: CASE EVENT DATE: 20190730
